FAERS Safety Report 6849507-8 (Version None)
Quarter: 2010Q3

REPORT INFORMATION
  Report Type: 
  Country: None (occurrence: None)
  Receive Date: 20100716
  Receipt Date: 20080123
  Transmission Date: 20110219
  Serious: No
  Sender: FDA-Public Use
  Company Number: US-PFIZER INC-2007082238

PATIENT
  Sex: Female
  Weight: 88.6 kg

DRUGS (7)
  1. CHANTIX [Suspect]
     Indication: SMOKING CESSATION THERAPY
     Dates: start: 20070919
  2. MULTI-VITAMINS [Concomitant]
  3. KLOR-CON [Concomitant]
  4. HYDROCHLOROTHIAZIDE [Concomitant]
  5. AMITRIPTYLINE HYDROCHLORIDE [Concomitant]
  6. TRAMADOL [Concomitant]
  7. ATENOLOL [Concomitant]

REACTIONS (1)
  - PAIN [None]
